FAERS Safety Report 22594245 (Version 1)
Quarter: 2023Q2

REPORT INFORMATION
  Report Type: Spontaneous
  Country: US (occurrence: US)
  Receive Date: 20230613
  Receipt Date: 20230613
  Transmission Date: 20230721
  Serious: No
  Sender: FDA-Public Use
  Company Number: US-BAYER-2023A077978

PATIENT
  Age: 76 Year
  Sex: Female

DRUGS (2)
  1. ASTEPRO [Suspect]
     Active Substance: AZELASTINE HYDROCHLORIDE
     Indication: Hypersensitivity
     Dosage: TWO SPRAYS ON EACH NOSTRIL, I GOT IT DOWN TO ONE SPRAY ON EACH NOSETRAIL
     Route: 055
  2. ASTEPRO [Suspect]
     Active Substance: AZELASTINE HYDROCHLORIDE
     Indication: Nasopharyngitis

REACTIONS (2)
  - Therapeutic response unexpected [Recovering/Resolving]
  - Sleep disorder [Recovering/Resolving]

NARRATIVE: CASE EVENT DATE: 20230524
